FAERS Safety Report 8145340-8 (Version None)
Quarter: 2012Q1

REPORT INFORMATION
  Report Type: 
  Country: None (occurrence: None)
  Receive Date: 20120217
  Receipt Date: 20120210
  Transmission Date: 20120608
  Serious: Yes (Other)
  Sender: FDA-Public Use
  Company Number: US-VERTEX PHARMACEUTICALS INC.-AE-2012-002061

PATIENT
  Sex: Male
  Weight: 76.272 kg

DRUGS (3)
  1. PEGASYS [Concomitant]
     Indication: HEPATITIS C
     Route: 058
     Dates: start: 20110111
  2. RIBAVIRIN [Concomitant]
     Indication: HEPATITIS C
     Route: 048
     Dates: start: 20110111
  3. INCIVEK [Suspect]
     Indication: HEPATITIS C
     Route: 048

REACTIONS (15)
  - VISION BLURRED [None]
  - CONFUSIONAL STATE [None]
  - INSOMNIA [None]
  - WEIGHT DECREASED [None]
  - COORDINATION ABNORMAL [None]
  - INFLUENZA LIKE ILLNESS [None]
  - FATIGUE [None]
  - CARDIAC FAILURE CONGESTIVE [None]
  - PRURITUS [None]
  - DECREASED APPETITE [None]
  - DIZZINESS [None]
  - DYSPNOEA [None]
  - DEPRESSION [None]
  - RASH [None]
  - ANAEMIA [None]
